FAERS Safety Report 13824406 (Version 2)
Quarter: 2017Q3

REPORT INFORMATION
  Report Type: Spontaneous
  Country: JP (occurrence: JP)
  Receive Date: 20170802
  Receipt Date: 20170808
  Transmission Date: 20171127
  Serious: Yes (Hospitalization, Other)
  Sender: FDA-Public Use
  Company Number: JP-GLAXOSMITHKLINE-JP2017JPN017825

PATIENT
  Age: 6 Year
  Sex: Male
  Weight: 19 kg

DRUGS (6)
  1. EXCEGRAN [Concomitant]
     Active Substance: ZONISAMIDE
     Indication: SEIZURE
     Dosage: 80 MG, BID
     Dates: start: 20161209
  2. LAMICTAL [Suspect]
     Active Substance: LAMOTRIGINE
     Indication: EPILEPSY
     Dosage: 2 MG, QD
     Route: 048
     Dates: start: 20170106, end: 20170107
  3. MYSTAN [Concomitant]
     Active Substance: CLOBAZAM
     Dosage: 1.5 MG, QD
     Dates: start: 20161226, end: 20170118
  4. MYSTAN [Concomitant]
     Active Substance: CLOBAZAM
     Indication: SEIZURE
     Dosage: 1.5 MG, BID
  5. E KEPPRA [Concomitant]
     Active Substance: LEVETIRACETAM
     Indication: SEIZURE
     Dosage: 400 MG, BID
     Dates: start: 20161226
  6. EXCEGRAN [Concomitant]
     Active Substance: ZONISAMIDE
     Dosage: 100 MG, BID
     Dates: start: 20170110

REACTIONS (14)
  - Palmar erythema [Recovering/Resolving]
  - Cough [Recovering/Resolving]
  - Pyrexia [Recovering/Resolving]
  - Erythema [Recovering/Resolving]
  - Lymphadenopathy [Recovering/Resolving]
  - Respiratory symptom [Recovering/Resolving]
  - Conjunctivitis [Recovering/Resolving]
  - Conjunctival hyperaemia [Recovering/Resolving]
  - Erythema of eyelid [Recovering/Resolving]
  - Eye discharge [Recovering/Resolving]
  - Tracheobronchitis mycoplasmal [Not Recovered/Not Resolved]
  - Stevens-Johnson syndrome [Recovered/Resolved]
  - Ocular hyperaemia [Recovering/Resolving]
  - Rash [Recovering/Resolving]

NARRATIVE: CASE EVENT DATE: 201701
